FAERS Safety Report 17542144 (Version 1)
Quarter: 2020Q1

REPORT INFORMATION
  Report Type: Spontaneous
  Country: US (occurrence: US)
  Receive Date: 20200313
  Receipt Date: 20200313
  Transmission Date: 20200409
  Serious: No
  Sender: FDA-Public Use
  Company Number: US-FDC LIMITED-2020RIS00045

PATIENT
  Age: 78 Year
  Sex: Female
  Weight: 70.3 kg

DRUGS (3)
  1. AZITHROMYCIN ANHYDROUS. [Suspect]
     Active Substance: AZITHROMYCIN ANHYDROUS
     Indication: LOWER RESPIRATORY TRACT INFECTION
     Dosage: 2 TABLETS, ONCE
     Dates: start: 20200122, end: 20200122
  2. AZITHROMYCIN ANHYDROUS. [Suspect]
     Active Substance: AZITHROMYCIN ANHYDROUS
     Indication: UPPER RESPIRATORY TRACT INFECTION
     Dosage: 1 TABLETS, 1X/DAY
     Dates: start: 20200123, end: 20200126
  3. OFLOXACIN. [Suspect]
     Active Substance: OFLOXACIN
     Indication: CONJUNCTIVITIS
     Dosage: 1 DROP, 3X/DAY ^IN BOTH EYES^
     Route: 047
     Dates: start: 20200122, end: 20200131

REACTIONS (4)
  - Off label use [Recovered/Resolved]
  - Exposure via skin contact [Recovered/Resolved]
  - Fatigue [Not Recovered/Not Resolved]
  - Product use complaint [Recovered/Resolved]

NARRATIVE: CASE EVENT DATE: 202001
